FAERS Safety Report 18396380 (Version 1)
Quarter: 2020Q4

REPORT INFORMATION
  Report Type: Other
  Country: US (occurrence: US)
  Receive Date: 20201019
  Receipt Date: 20201019
  Transmission Date: 20210114
  Serious: Yes (Other)
  Sender: FDA-Public Use
  Company Number: US-ROCHE-2692464

PATIENT
  Sex: Female

DRUGS (1)
  1. OCREVUS [Suspect]
     Active Substance: OCRELIZUMAB
     Indication: RELAPSING MULTIPLE SCLEROSIS
     Dosage: 300 MG ON DAY 1 AND 15 THEN 600 MG ONCE IN 6 MONTHS.?ON 22/MAR/2018, 10/SEP/2018, 08/MAR/2019, 23/AU
     Route: 042
     Dates: start: 20180306

REACTIONS (1)
  - Herpes virus infection [Not Recovered/Not Resolved]
